FAERS Safety Report 9197002 (Version 1)
Quarter: 2013Q1

REPORT INFORMATION
  Report Type: Spontaneous
  Country: US (occurrence: US)
  Receive Date: 20130328
  Receipt Date: 20130328
  Transmission Date: 20140127
  Serious: Yes (Other)
  Sender: FDA-Public Use
  Company Number: US-TEVA-394885USA

PATIENT
  Age: 57 Year
  Sex: Male

DRUGS (9)
  1. ACTIQ [Suspect]
  2. TRAMADOL [Suspect]
  3. PROPRANOLOL [Suspect]
  4. COLCHICINE [Suspect]
  5. ACETYLSALICYLIC ACID [Suspect]
  6. LONG-ACTING NITRATES [Suspect]
  7. HYDROCHLOROTHIAZIDE [Suspect]
  8. ANGIOTENSIN CONVERTING ENZYME INHIBITORS [Suspect]
  9. OTHER TYPES OF GAMMA AMINOBUTYRIC ACID ANTICONVULSANT [Suspect]

REACTIONS (1)
  - Suicide attempt [Unknown]
